FAERS Safety Report 19184050 (Version 1)
Quarter: 2021Q2

REPORT INFORMATION
  Report Type: Spontaneous
  Country: DE (occurrence: DE)
  Receive Date: 20210427
  Receipt Date: 20210427
  Transmission Date: 20210717
  Serious: Yes (Other)
  Sender: FDA-Public Use
  Company Number: DE-AUROBINDO-AUR-APL-2020-026623

PATIENT
  Age: 12 Year
  Sex: Male

DRUGS (4)
  1. PRIORIX [Suspect]
     Active Substance: MEASLES-MUMPS-RUBELLA VIRUS VACCINE
     Indication: IMMUNISATION
     Dosage: UNK
     Route: 065
     Dates: start: 201605
  2. IMATINIB. [Suspect]
     Active Substance: IMATINIB MESYLATE
     Indication: CHRONIC MYELOID LEUKAEMIA
     Dosage: 200 MILLIGRAM, ONCE A DAY (INITIAL DOSE, INTERRUPT THE TREATMENT FOR A TOTAL OF 3 WEEKS PRIOR)
     Route: 065
  3. PRIORIX [Suspect]
     Active Substance: MEASLES-MUMPS-RUBELLA VIRUS VACCINE
     Dosage: UNK
     Route: 065
     Dates: start: 201703
  4. IMATINIB. [Suspect]
     Active Substance: IMATINIB MESYLATE
     Dosage: 400 MILLIGRAM, (DOSE INCREASED)
     Route: 065
     Dates: start: 201807

REACTIONS (3)
  - Seroconversion test negative [Recovered/Resolved]
  - Vaccination failure [Recovered/Resolved]
  - Immunosuppression [Recovered/Resolved]
